FAERS Safety Report 13484481 (Version 1)
Quarter: 2017Q2

REPORT INFORMATION
  Report Type: Report from Study
  Country: BR (occurrence: BR)
  Receive Date: 20170426
  Receipt Date: 20170426
  Transmission Date: 20170830
  Serious: Yes (Hospitalization, Other)
  Sender: FDA-Public Use
  Company Number: PHHY2016BR049066

PATIENT
  Age: 27 Year
  Sex: Female
  Weight: 82 kg

DRUGS (4)
  1. METRONIDAZOL [Suspect]
     Active Substance: METRONIDAZOLE
     Indication: OPTIC NEURITIS
     Dosage: INCREASE IN DOSAGE
     Route: 042
  2. GILENYA [Suspect]
     Active Substance: FINGOLIMOD HYDROCHLORIDE
     Dosage: 0.5 MG, QOD
     Route: 048
     Dates: start: 201606
  3. GILENYA [Suspect]
     Active Substance: FINGOLIMOD HYDROCHLORIDE
     Indication: MULTIPLE SCLEROSIS
     Dosage: 0.5 MG, QD
     Route: 048
     Dates: start: 20151210
  4. METRONIDAZOL [Suspect]
     Active Substance: METRONIDAZOLE
     Indication: MULTIPLE SCLEROSIS RELAPSE
     Dosage: 1 G, QD
     Route: 042

REACTIONS (8)
  - Multiple sclerosis relapse [Recovering/Resolving]
  - Optic neuritis [Unknown]
  - Alopecia [Recovered/Resolved]
  - Renal impairment [Not Recovered/Not Resolved]
  - Fatigue [Recovered/Resolved]
  - Liver function test increased [Recovered/Resolved]
  - Hepatic function abnormal [Unknown]
  - Prescribed underdose [Unknown]

NARRATIVE: CASE EVENT DATE: 20160116
